FAERS Safety Report 23486317 (Version 1)
Quarter: 2024Q1

REPORT INFORMATION
  Report Type: Spontaneous
  Country: RU (occurrence: RU)
  Receive Date: 20240206
  Receipt Date: 20240206
  Transmission Date: 20240410
  Serious: Yes (Hospitalization)
  Sender: FDA-Public Use
  Company Number: None

PATIENT

DRUGS (4)
  1. ONCASPAR [Suspect]
     Active Substance: PEGASPARGASE
     Indication: Acute leukaemia
     Dosage: 1200 IU, UNK
     Route: 042
     Dates: start: 20230920, end: 20240117
  2. URSODIOL [Concomitant]
     Active Substance: URSODIOL
     Indication: Hepatobiliary disorder prophylaxis
     Dosage: UNK
     Route: 048
     Dates: start: 20231226
  3. ONDANSETRON [Concomitant]
     Active Substance: ONDANSETRON
     Indication: Antiemetic supportive care
     Dosage: UNK
     Route: 042
     Dates: start: 20231225
  4. COTRIMOXAZOLE [Concomitant]
     Active Substance: SULFAMETHOXAZOLE\TRIMETHOPRIM
     Indication: Antibiotic prophylaxis
     Dosage: UNK
     Route: 048
     Dates: start: 20230916

REACTIONS (7)
  - Abdominal pain [Recovering/Resolving]
  - Vomiting [Recovering/Resolving]
  - Amylase increased [Recovering/Resolving]
  - Lipase increased [Recovering/Resolving]
  - Ascites [Recovering/Resolving]
  - Hydrothorax [Recovering/Resolving]
  - Atelectasis [Recovering/Resolving]

NARRATIVE: CASE EVENT DATE: 20240116
